FAERS Safety Report 16672107 (Version 2)
Quarter: 2019Q3

REPORT INFORMATION
  Report Type: Spontaneous
  Country: US (occurrence: US)
  Receive Date: 20190806
  Receipt Date: 20190814
  Transmission Date: 20191004
  Serious: No
  Sender: FDA-Public Use
  Company Number: US-PFIZER INC-2019198350

PATIENT
  Age: 59 Year
  Sex: Female

DRUGS (3)
  1. FULVESTRANT. [Suspect]
     Active Substance: FULVESTRANT
     Indication: HER-2 POSITIVE BREAST CANCER
     Dosage: UNK
  2. IBRANCE [Suspect]
     Active Substance: PALBOCICLIB
     Indication: HER-2 POSITIVE BREAST CANCER
     Dosage: 125 MG, UNK
  3. TRASTUZUMAB. [Suspect]
     Active Substance: TRASTUZUMAB
     Indication: HER-2 POSITIVE BREAST CANCER
     Dosage: UNK

REACTIONS (4)
  - Neoplasm progression [Unknown]
  - Off label use [Unknown]
  - Myalgia [Unknown]
  - Product use in unapproved indication [Unknown]
